FAERS Safety Report 5285943-1 (Version None)
Quarter: 2007Q2

REPORT INFORMATION
  Report Type: 
  Country: None (occurrence: None)
  Receive Date: 20070404
  Receipt Date: 20070326
  Transmission Date: 20071010
  Serious: Yes (Other)
  Sender: FDA-Public Use
  Company Number: PHFR2007GB00555

PATIENT
  Age: 75 Year
  Sex: Male
  Weight: 90 kg

DRUGS (13)
  1. STARLIX [Suspect]
     Indication: DIABETES MELLITUS NON-INSULIN-DEPENDENT
     Dosage: 180 MG, TID
     Route: 048
     Dates: start: 20031121
  2. METFORMIN HCL [Concomitant]
     Dosage: 500 MG, TID
     Route: 065
     Dates: end: 20060701
  3. GLICLAZIDE [Concomitant]
     Route: 065
     Dates: end: 20070101
  4. SIMVASTATIN [Concomitant]
     Indication: HYPERLIPIDAEMIA
     Dosage: 40 MG, QD
     Route: 048
  5. ALLOPURINOL [Concomitant]
     Dosage: 300 MG, QD
     Route: 048
  6. IBUPROFEN [Concomitant]
     Indication: OSTEOARTHRITIS
     Dosage: 400MG / DAY
     Route: 048
  7. ACETYLSALICYLIC ACID SRT [Concomitant]
     Indication: MYOCARDIAL ISCHAEMIA
     Dosage: 75 MG, QD
     Route: 048
  8. LOPRAZOLAM [Concomitant]
     Indication: INSOMNIA
     Dosage: 1 MG, QD
     Route: 048
  9. RAMIPRIL [Concomitant]
     Indication: HYPERTENSION
     Dosage: 2.5 MG, QD
     Route: 048
  10. CO-AMILOFRUSE [Concomitant]
     Indication: DYSPNOEA
     Dosage: 2.5MG / 20MG MANE
     Route: 048
  11. TRAMADOL HCL [Concomitant]
     Indication: OSTEOARTHRITIS
     Dosage: 50MG
     Route: 048
  12. COMBIVENT                               /GFR/ [Concomitant]
     Indication: CHRONIC OBSTRUCTIVE PULMONARY DISEASE
     Dosage: 2 PUFFS / DAY
  13. LANSOPRAZOLE [Concomitant]
     Dosage: 15 MG, QD
     Route: 048

REACTIONS (4)
  - BLOOD CREATININE INCREASED [None]
  - FEMORAL ARTERY OCCLUSION [None]
  - GLOMERULAR FILTRATION RATE DECREASED [None]
  - RENAL ARTERY STENOSIS [None]
